FAERS Safety Report 4437128-6 (Version None)
Quarter: 2004Q3

REPORT INFORMATION
  Report Type: 
  Country: None (occurrence: None)
  Receive Date: 20040830
  Receipt Date: 20040517
  Transmission Date: 20050211
  Serious: Yes (Death, Other)
  Sender: FDA-Public Use
  Company Number: PHNU2004DE01838

PATIENT
  Age: 75 Year
  Sex: Female

DRUGS (2)
  1. GLEEVEC [Suspect]
     Indication: CHRONIC MYELOID LEUKAEMIA
     Route: 048
     Dates: start: 20040509
  2. GLEEVEC [Suspect]
     Route: 048
     Dates: start: 20030708

REACTIONS (4)
  - ASCITES [None]
  - DEATH [None]
  - OEDEMA [None]
  - OEDEMA PERIPHERAL [None]
